FAERS Safety Report 13820664 (Version 1)
Quarter: 2017Q3

REPORT INFORMATION
  Report Type: Spontaneous
  Country: US (occurrence: US)
  Receive Date: 20170801
  Receipt Date: 20170801
  Transmission Date: 20171127
  Serious: Yes (Hospitalization)
  Sender: FDA-Public Use
  Company Number: None

PATIENT
  Age: 81 Year
  Sex: Female

DRUGS (7)
  1. METOPROLOL TARTRATE. [Concomitant]
     Active Substance: METOPROLOL TARTRATE
  2. ADVAIR HFA [Concomitant]
     Active Substance: FLUTICASONE PROPIONATE\SALMETEROL XINAFOATE
  3. LETROZOLE 2.5MG [Suspect]
     Active Substance: LETROZOLE
     Indication: NEOPLASM MALIGNANT
     Route: 048
     Dates: start: 20170711
  4. SPIRVA [Concomitant]
  5. IBRANCE [Suspect]
     Active Substance: PALBOCICLIB
     Route: 048
     Dates: start: 20170711
  6. NORPACE [Concomitant]
     Active Substance: DISOPYRAMIDE PHOSPHATE
  7. LEVOTHROXIN [Concomitant]

REACTIONS (1)
  - Hospitalisation [None]
